FAERS Safety Report 7788885-2 (Version None)
Quarter: 2011Q3

REPORT INFORMATION
  Report Type: 
  Country: None (occurrence: None)
  Receive Date: 20110930
  Receipt Date: 20110921
  Transmission Date: 20111222
  Serious: Yes (Hospitalization, Other)
  Sender: FDA-Public Use
  Company Number: GB-B.I. PHARMACEUTICALS,INC./RIDGEFIELD-2010-UK-00737UK

PATIENT
  Age: 71 Year
  Sex: Female
  Weight: 60 kg

DRUGS (7)
  1. BISOPROLOL [Concomitant]
     Indication: TACHYCARDIA
  2. AMLODIPINE [Concomitant]
     Indication: HYPERTENSION
     Dosage: 5 MG
     Route: 048
     Dates: start: 20071015
  3. UNSPECIFIED CONCOMITANT MEDICATION [Concomitant]
  4. BISOPROLOL [Concomitant]
     Indication: BRADYCARDIA
     Dosage: 1.25 MG
     Route: 048
     Dates: start: 20100820
  5. MICARDIS HCT [Suspect]
     Dosage: WHOLE TABLET 80/12.5MG
  6. MICARDIS HCT [Suspect]
     Indication: HYPERTENSION
     Dosage: HALF A TABLET DAILY. TABLET STRENGTH (80 / 12.5MG).
     Route: 048
     Dates: start: 20061208
  7. ASPIRIN [Concomitant]
     Dosage: 75 MG

REACTIONS (6)
  - DYSPNOEA [None]
  - HEART RATE INCREASED [None]
  - SUPRAVENTRICULAR TACHYCARDIA [None]
  - SICK SINUS SYNDROME [None]
  - BUNDLE BRANCH BLOCK LEFT [None]
  - BLOOD PRESSURE INCREASED [None]
